FAERS Safety Report 15784906 (Version 1)
Quarter: 2019Q1

REPORT INFORMATION
  Report Type: Spontaneous
  Country: US (occurrence: US)
  Receive Date: 20190103
  Receipt Date: 20190103
  Transmission Date: 20190417
  Serious: Yes (Hospitalization, Other)
  Sender: FDA-Public Use
  Company Number: US-TORRENT-00007378

PATIENT
  Sex: Male

DRUGS (2)
  1. LOSARTAN. [Suspect]
     Active Substance: LOSARTAN
     Indication: HYPERTENSION
     Dosage: UNK
     Dates: start: 201803
  2. AMPHETAMINE DEXTROSE [Concomitant]
     Indication: ATTENTION DEFICIT/HYPERACTIVITY DISORDER
     Dosage: TWICE A DAY

REACTIONS (10)
  - Malaise [Unknown]
  - Pyrexia [Unknown]
  - Joint effusion [Unknown]
  - Fatigue [Unknown]
  - Dyspnoea [Unknown]
  - Lymphoedema [Unknown]
  - Chills [Unknown]
  - Pain [Unknown]
  - Lymphadenopathy [Unknown]
  - Peripheral swelling [Unknown]

NARRATIVE: CASE EVENT DATE: 2018
